FAERS Safety Report 5791323-2 (Version None)
Quarter: 2008Q2

REPORT INFORMATION
  Report Type: 
  Country: None (occurrence: None)
  Receive Date: 20080626
  Receipt Date: 20080303
  Transmission Date: 20081010
  Serious: No
  Sender: FDA-Public Use
  Company Number: A0712841A

PATIENT
  Age: 33 Year
  Sex: Male

DRUGS (1)
  1. ALLI [Suspect]
     Dates: end: 20080228

REACTIONS (3)
  - DIARRHOEA [None]
  - FLATULENCE [None]
  - STEATORRHOEA [None]
